FAERS Safety Report 10702066 (Version 2)
Quarter: 2015Q1

REPORT INFORMATION
  Report Type: Spontaneous
  Country: JP (occurrence: JP)
  Receive Date: 20150109
  Receipt Date: 20150218
  Transmission Date: 20150721
  Serious: Yes (Life-Threatening)
  Sender: FDA-Public Use
  Company Number: JP-ABBVIE-15P-087-1331076-00

PATIENT
  Age: 64 Year
  Sex: Male

DRUGS (1)
  1. LEUPLIN [Suspect]
     Active Substance: LEUPROLIDE ACETATE
     Indication: PROSTATE CANCER
     Route: 058
     Dates: start: 20130821

REACTIONS (2)
  - Prostatic specific antigen increased [Unknown]
  - Injection site abscess [Unknown]

NARRATIVE: CASE EVENT DATE: 20140804
